FAERS Safety Report 24288942 (Version 1)
Quarter: 2024Q3

REPORT INFORMATION
  Report Type: Spontaneous
  Country: HR (occurrence: HR)
  Receive Date: 20240906
  Receipt Date: 20240906
  Transmission Date: 20241017
  Serious: Yes (Hospitalization, Other)
  Sender: CELLTRION
  Company Number: None

PATIENT

DRUGS (7)
  1. ADALIMUMAB [Suspect]
     Active Substance: ADALIMUMAB
     Indication: Crohn^s disease
     Dosage: UNK
     Dates: start: 202001, end: 202305
  2. INFLIXIMAB [Suspect]
     Active Substance: INFLIXIMAB
     Indication: Crohn^s disease
     Dosage: 300 MG EVERY 1 DAY (ADR IS ADEQUATELY LABELED: YES)
     Route: 042
     Dates: start: 20240206, end: 20240206
  3. D VITAL [COLECALCIFEROL] [Concomitant]
     Indication: Osteoporosis prophylaxis
     Dosage: 25000 IU EVERY 1 MONTH
     Route: 048
  4. D VITAL [COLECALCIFEROL] [Concomitant]
     Indication: Vitamin D deficiency
  5. FOLIC ACID [Concomitant]
     Active Substance: FOLIC ACID
     Indication: Anaemia
     Dosage: 5 MG EVERY 1 DAY
     Route: 048
  6. IMURAN [Concomitant]
     Active Substance: AZATHIOPRINE
     Indication: Crohn^s disease
     Dosage: 50 MG EVERY 1 DAY
     Route: 048
     Dates: start: 20240206
  7. ISONIAZID [Concomitant]
     Active Substance: ISONIAZID
     Indication: Antibiotic prophylaxis
     Dosage: 300 MG EVERY 1 DAY
     Route: 048
     Dates: start: 202312, end: 202402

REACTIONS (3)
  - Cardiac failure [Recovering/Resolving]
  - Drug ineffective [Unknown]
  - Intentional product use issue [Unknown]

NARRATIVE: CASE EVENT DATE: 20240210
